FAERS Safety Report 25238051 (Version 2)
Quarter: 2025Q2

REPORT INFORMATION
  Report Type: Report from Study
  Country: GB (occurrence: GB)
  Receive Date: 20250425
  Receipt Date: 20250519
  Transmission Date: 20250717
  Serious: Yes (Other)
  Sender: CELLTRION
  Company Number: GB-CELLTRION INC.-2025GB012035

PATIENT

DRUGS (1)
  1. ADALIMUMAB-AATY [Suspect]
     Active Substance: ADALIMUMAB-AATY
     Indication: Psoriatic arthropathy
     Route: 058
     Dates: start: 202501

REACTIONS (6)
  - Retinal exudates [Unknown]
  - Vitreous floaters [Unknown]
  - Infection [Unknown]
  - Malaise [Unknown]
  - Pruritus [Unknown]
  - Bronchitis [Unknown]
